FAERS Safety Report 5174991-8 (Version None)
Quarter: 2006Q4

REPORT INFORMATION
  Report Type: 
  Country: None (occurrence: None)
  Receive Date: 20061206
  Receipt Date: 20061128
  Transmission Date: 20070319
  Serious: Yes (Other)
  Sender: FDA-Public Use
  Company Number: 2006147550

PATIENT
  Age: 55 Year
  Sex: Male

DRUGS (4)
  1. LIPITOR [Suspect]
     Indication: BLOOD CHOLESTEROL INCREASED
     Dosage: 10 MG (10 MG, 1 IN 1 D), ORAL
     Route: 048
     Dates: start: 20040101
  2. ASPIRIN [Concomitant]
  3. SUSTRATE (PROPATYLNITRATE) [Concomitant]
  4. SELZOK (METOPROLOL SUCCINATE) [Concomitant]

REACTIONS (4)
  - DISCOMFORT [None]
  - EYE DISORDER [None]
  - EYE PAIN [None]
  - OCULAR VASCULAR DISORDER [None]
